FAERS Safety Report 18642024 (Version 2)
Quarter: 2021Q2

REPORT INFORMATION
  Report Type: Spontaneous
  Country: CA (occurrence: CA)
  Receive Date: 20201221
  Receipt Date: 20210531
  Transmission Date: 20210717
  Serious: Yes (Other)
  Sender: FDA-Public Use
  Company Number: CA-GLAXOSMITHKLINE-CA2020AMR221193

PATIENT
  Age: 62 Year
  Sex: Female
  Weight: 50 kg

DRUGS (4)
  1. ELIQUIS [Suspect]
     Active Substance: APIXABAN
     Dosage: UNK
  2. ZEJULA [Suspect]
     Active Substance: NIRAPARIB
     Dosage: 100 MG, QD
  3. ZEJULA [Suspect]
     Active Substance: NIRAPARIB
     Indication: PRODUCT USED FOR UNKNOWN INDICATION
     Dosage: 200 MG, QD
     Dates: start: 20201116
  4. ELIQUIS [Suspect]
     Active Substance: APIXABAN
     Indication: PRODUCT USED FOR UNKNOWN INDICATION
     Dosage: UNK
     Dates: end: 20201208

REACTIONS (4)
  - Thrombocytopenia [Recovered/Resolved]
  - Pancytopenia [Recovered/Resolved]
  - Neutropenia [Unknown]
  - Anaemia [Unknown]
